FAERS Safety Report 7990582-5 (Version None)
Quarter: 2011Q4

REPORT INFORMATION
  Report Type: 
  Country: None (occurrence: None)
  Receive Date: 20111219
  Receipt Date: 20111014
  Transmission Date: 20120403
  Serious: Yes (Other)
  Sender: FDA-Public Use
  Company Number: US-ASTRAZENECA-2011SE62121

PATIENT
  Age: 85 Year
  Sex: Female

DRUGS (2)
  1. PROLIA [Suspect]
     Indication: OSTEOPOROSIS
     Route: 065
  2. CRESTOR [Suspect]
     Indication: CORONARY ARTERY DISEASE
     Route: 048

REACTIONS (1)
  - RHABDOMYOLYSIS [None]
